FAERS Safety Report 16976817 (Version 1)
Quarter: 2019Q4

REPORT INFORMATION
  Report Type: Spontaneous
  Country: FR (occurrence: FR)
  Receive Date: 20191030
  Receipt Date: 20191030
  Transmission Date: 20200122
  Serious: Yes (Hospitalization)
  Sender: FDA-Public Use
  Company Number: FR-MERZ PHARMACEUTICALS GMBH-19-04455

PATIENT
  Age: 43 Year
  Sex: Female
  Weight: 64 kg

DRUGS (2)
  1. OMEPRAZOLE. [Concomitant]
     Active Substance: OMEPRAZOLE
     Indication: GASTRITIS
  2. ASCLERA [Suspect]
     Active Substance: POLIDOCANOL
     Indication: VARICOSE VEIN
     Dosage: 1 INJECTION
     Route: 042
     Dates: start: 20190926, end: 20190926

REACTIONS (3)
  - Hemianopia homonymous [Recovered/Resolved]
  - Tinnitus [Recovered/Resolved]
  - Headache [Recovered/Resolved]

NARRATIVE: CASE EVENT DATE: 20190926
